FAERS Safety Report 7156056-9 (Version None)
Quarter: 2010Q4

REPORT INFORMATION
  Report Type: 
  Country: None (occurrence: None)
  Receive Date: 20101214
  Receipt Date: 20101207
  Transmission Date: 20110411
  Serious: Yes (Hospitalization)
  Sender: FDA-Public Use
  Company Number: FR-SANOFI-AVENTIS-2010SA074316

PATIENT
  Age: 64 Year
  Sex: Female

DRUGS (2)
  1. MULTAQ [Suspect]
     Route: 048
     Dates: start: 20101127, end: 20101204
  2. PREVISCAN [Concomitant]
     Indication: PROPHYLAXIS
     Route: 048

REACTIONS (1)
  - DYSPNOEA [None]
